FAERS Safety Report 24274835 (Version 3)
Quarter: 2024Q4

REPORT INFORMATION
  Report Type: Spontaneous
  Country: ES (occurrence: ES)
  Receive Date: 20240902
  Receipt Date: 20241014
  Transmission Date: 20250115
  Serious: Yes (Death, Hospitalization, Other)
  Sender: APELLIS PHARMACEUTICALS
  Company Number: ES-BIOVITRUM-2024-ES-009431

PATIENT

DRUGS (1)
  1. PEGCETACOPLAN [Suspect]
     Active Substance: PEGCETACOPLAN
     Indication: Paroxysmal nocturnal haemoglobinuria
     Dosage: UNKNOWN

REACTIONS (21)
  - Respiratory failure [Fatal]
  - Septic shock [Fatal]
  - Diarrhoea [Unknown]
  - Aphthous ulcer [Recovering/Resolving]
  - Pyrexia [Not Recovered/Not Resolved]
  - Epstein Barr virus positive mucocutaneous ulcer [Unknown]
  - Acute pulmonary oedema [Unknown]
  - Ventricular tachycardia [Unknown]
  - Enterococcal infection [Unknown]
  - Thrombocytopenia [Unknown]
  - Atrial fibrillation [Unknown]
  - Pulmonary congestion [Unknown]
  - Pleural effusion [Unknown]
  - Renal impairment [Unknown]
  - Cardiac failure [Unknown]
  - Prostatitis [Unknown]
  - Colitis [Unknown]
  - Hypokalaemia [Unknown]
  - Urinary tract infection [Unknown]
  - Bundle branch block right [Unknown]
  - Prostatic abscess [Not Recovered/Not Resolved]

NARRATIVE: CASE EVENT DATE: 20240101
